FAERS Safety Report 5303617-5 (Version None)
Quarter: 2007Q2

REPORT INFORMATION
  Report Type: 
  Country: None (occurrence: None)
  Receive Date: 20070420
  Receipt Date: 20070323
  Transmission Date: 20071010
  Serious: Yes (Death)
  Sender: FDA-Public Use
  Company Number: NO-PFIZER INC-2007023914

PATIENT
  Sex: Female

DRUGS (5)
  1. CELEBRA [Suspect]
     Indication: RHEUMATOID ARTHRITIS
     Dates: start: 20010801, end: 20050301
  2. MEDROL [Suspect]
     Indication: RHEUMATOID ARTHRITIS
  3. VIOXX [Suspect]
     Indication: RHEUMATOID ARTHRITIS
  4. ARCOXIA [Suspect]
     Indication: RHEUMATOID ARTHRITIS
  5. METHOTREXATE [Suspect]
     Indication: RHEUMATOID ARTHRITIS

REACTIONS (1)
  - MYOCARDIAL INFARCTION [None]
